FAERS Safety Report 23254461 (Version 2)
Quarter: 2024Q1

REPORT INFORMATION
  Report Type: Spontaneous
  Country: GB (occurrence: GB)
  Receive Date: 20231202
  Receipt Date: 20240101
  Transmission Date: 20240409
  Serious: Yes (Death, Other)
  Sender: FDA-Public Use
  Company Number: GB-SA-SAC20231130000179

PATIENT
  Age: 70 Year

DRUGS (2)
  1. SARCLISA [Suspect]
     Active Substance: ISATUXIMAB-IRFC
     Indication: Plasma cell myeloma
     Dosage: UNK
     Route: 065
  2. POMALIDOMIDE [Concomitant]
     Active Substance: POMALIDOMIDE
     Dosage: UNK

REACTIONS (2)
  - Acute hepatic failure [Fatal]
  - Disease progression [Fatal]

NARRATIVE: CASE EVENT DATE: 20230801
